FAERS Safety Report 23778817 (Version 1)
Quarter: 2024Q2

REPORT INFORMATION
  Report Type: Spontaneous
  Country: US (occurrence: None)
  Receive Date: 20240423
  Receipt Date: 20240423
  Transmission Date: 20240715
  Serious: No
  Sender: FDA-Public Use
  Company Number: None

PATIENT
  Age: 69 Year
  Sex: Female

DRUGS (1)
  1. VUMERITY [Suspect]
     Active Substance: DIROXIMEL FUMARATE
     Indication: Multiple sclerosis
     Dosage: FREQUENCY : TWICE A DAY;?
     Route: 048
     Dates: start: 202308

REACTIONS (6)
  - Multiple sclerosis relapse [None]
  - Stress [None]
  - Anxiety [None]
  - Syncope [None]
  - Hyponatraemia [None]
  - Abdominal pain [None]

NARRATIVE: CASE EVENT DATE: 20240401
